FAERS Safety Report 8455834-3 (Version None)
Quarter: 2012Q2

REPORT INFORMATION
  Report Type: 
  Country: None (occurrence: None)
  Receive Date: 20120621
  Receipt Date: 20120614
  Transmission Date: 20120825
  Serious: Yes (Hospitalization)
  Sender: FDA-Public Use
  Company Number: US-B.I. PHARMACEUTICALS,INC./RIDGEFIELD-2012-BP-13734BP

PATIENT
  Age: 54 Year
  Sex: Male

DRUGS (2)
  1. AMIODARONE HYDROCHLORIDE [Concomitant]
     Indication: ATRIAL FIBRILLATION
  2. PRADAXA [Suspect]
     Indication: ATRIAL FIBRILLATION
     Dosage: 300 MG
     Route: 048
     Dates: start: 20120212

REACTIONS (4)
  - ATRIAL FLUTTER [None]
  - EMBOLIC STROKE [None]
  - VISUAL IMPAIRMENT [None]
  - CEREBROVASCULAR ACCIDENT [None]
